FAERS Safety Report 15362449 (Version 1)
Quarter: 2018Q3

REPORT INFORMATION
  Report Type: Spontaneous
  Country: JP (occurrence: JP)
  Receive Date: 20180907
  Receipt Date: 20180907
  Transmission Date: 20181010
  Serious: Yes (Hospitalization)
  Sender: FDA-Public Use
  Company Number: JP-PFIZER INC-2018352806

PATIENT
  Age: 15 Year

DRUGS (1)
  1. PRECEDEX [Suspect]
     Active Substance: DEXMEDETOMIDINE HYDROCHLORIDE
     Dosage: UNK

REACTIONS (3)
  - Drug administered to patient of inappropriate age [Unknown]
  - Feeling abnormal [Unknown]
  - Delayed recovery from anaesthesia [Unknown]
